FAERS Safety Report 12203765 (Version 1)
Quarter: 2016Q1

REPORT INFORMATION
  Report Type: Spontaneous
  Country: JP (occurrence: JP)
  Receive Date: 20160323
  Receipt Date: 20160323
  Transmission Date: 20160526
  Serious: Yes (Hospitalization, Other)
  Sender: FDA-Public Use
  Company Number: PHJP2016JP006333

PATIENT
  Weight: 66 kg

DRUGS (1)
  1. NEORAL [Suspect]
     Active Substance: CYCLOSPORINE
     Indication: MYELODYSPLASTIC SYNDROME
     Dosage: 50 MG, QD
     Route: 048

REACTIONS (5)
  - Platelet count decreased [Unknown]
  - Concomitant disease aggravated [Unknown]
  - Product use issue [Unknown]
  - Immunosuppressant drug level decreased [Unknown]
  - Cerebral infarction [Unknown]
